FAERS Safety Report 8617587-5 (Version None)
Quarter: 2012Q3

REPORT INFORMATION
  Report Type: 
  Country: None (occurrence: None)
  Receive Date: 20120824
  Receipt Date: 20120329
  Transmission Date: 20120928
  Serious: No
  Sender: FDA-Public Use
  Company Number: US-ASTRAZENECA-2011SE70862

PATIENT
  Age: 59 Year
  Sex: Female

DRUGS (11)
  1. SPIRIVA [Concomitant]
  2. LEVOTHYROXINE SODIUM [Concomitant]
     Indication: THYROID DISORDER
  3. SYMBICORT [Suspect]
     Dosage: 160/4.5 MCG 2 PUFFS TWO TIMES A DAY
     Route: 055
     Dates: start: 20111028
  4. SIMVASTATIN [Concomitant]
     Indication: BLOOD CHOLESTEROL ABNORMAL
  5. SYMBICORT [Suspect]
     Dosage: 2 PUFFS  TWICE A DAY
     Route: 055
     Dates: start: 20120127
  6. SYMBICORT [Suspect]
     Indication: CHRONIC OBSTRUCTIVE PULMONARY DISEASE
     Dosage: 160/4.5 MCG 2 PUFFS TWO TIMES A DAY
     Route: 055
     Dates: start: 20110701
  7. SYMBICORT [Suspect]
     Dosage: 160/4.5 MCG 2 PUFFS TWO TIMES A DAY
     Route: 055
     Dates: start: 20110901
  8. SYMBICORT [Suspect]
     Dosage: 2 PUFFS TWO TIMES A DAY
     Route: 055
  9. SYMBICORT [Suspect]
     Dosage: 4 PUFFS  A DAY
     Route: 055
     Dates: start: 20111129
  10. SYMBICORT [Suspect]
     Dosage: ONE PUFFS TWO TIMES A DAY
     Route: 055
  11. SERTRALINE HYDROCHLORIDE [Concomitant]
     Indication: ANXIETY

REACTIONS (3)
  - DRUG DOSE OMISSION [None]
  - DYSPNOEA [None]
  - INTENTIONAL DRUG MISUSE [None]
